FAERS Safety Report 18852968 (Version 2)
Quarter: 2021Q1

REPORT INFORMATION
  Report Type: Spontaneous
  Country: JP (occurrence: JP)
  Receive Date: 20210205
  Receipt Date: 20210312
  Transmission Date: 20210420
  Serious: Yes (Hospitalization)
  Sender: FDA-Public Use
  Company Number: JP-ROCHE-2762221

PATIENT
  Age: 62 Year
  Sex: Male
  Weight: 54 kg

DRUGS (2)
  1. AVASTIN [Suspect]
     Active Substance: BEVACIZUMAB
     Indication: HEPATOCELLULAR CARCINOMA
     Dosage: DOSAGE IS UNCERTAIN.
     Route: 041
     Dates: start: 20201116, end: 20201228
  2. TECENTRIQ [Suspect]
     Active Substance: ATEZOLIZUMAB
     Indication: HEPATOCELLULAR CARCINOMA
     Route: 041
     Dates: start: 20201116, end: 20201228

REACTIONS (2)
  - Neutrophil count decreased [Recovering/Resolving]
  - Pneumonia [Recovered/Resolved]

NARRATIVE: CASE EVENT DATE: 20210103
